FAERS Safety Report 5081863-6 (Version None)
Quarter: 2006Q3

REPORT INFORMATION
  Report Type: 
  Country: None (occurrence: None)
  Receive Date: 20060816
  Receipt Date: 20060614
  Transmission Date: 20061208
  Serious: Yes (Other)
  Sender: FDA-Public Use
  Company Number: DE-ROCHE-451690

PATIENT
  Age: 49 Year
  Sex: Female
  Weight: 79 kg

DRUGS (7)
  1. CAPECITABINE [Suspect]
     Indication: BREAST CANCER
     Dosage: DAY 1-14 EVERY 21 DAYS
     Route: 048
     Dates: start: 20060512
  2. CAPECITABINE [Suspect]
     Dosage: DAYS 1-14 EVERY 21 DAYS DOSE REDUCTION
     Route: 048
     Dates: start: 20060516
  3. HERCEPTIN [Suspect]
     Indication: BREAST CANCER
     Dosage: ON DAY 1 EVERY 21 DAYS
     Route: 042
     Dates: start: 20060213
  4. DOCETAXEL [Suspect]
     Indication: BREAST CANCER
     Dosage: ON DAY 1 EVERY 21 DAYS
     Route: 042
     Dates: start: 20060512
  5. DOCETAXEL [Suspect]
     Dosage: ON DAY 1 EVERY 21 DAYS
     Route: 042
     Dates: start: 20060101
  6. NAVOBAN [Concomitant]
     Dates: start: 20060512, end: 20060512
  7. DEXAMETHASONE [Concomitant]
     Dates: start: 20060512, end: 20060514

REACTIONS (11)
  - ARTHRALGIA [None]
  - BACK PAIN [None]
  - DYSPEPSIA [None]
  - FATIGUE [None]
  - GENERAL PHYSICAL HEALTH DETERIORATION [None]
  - GLOSSODYNIA [None]
  - HEADACHE [None]
  - HYPERHIDROSIS [None]
  - MUSCULOSKELETAL CHEST PAIN [None]
  - PAIN [None]
  - WHITE BLOOD CELL COUNT DECREASED [None]
